FAERS Safety Report 19913934 (Version 1)
Quarter: 2021Q4

REPORT INFORMATION
  Report Type: Spontaneous
  Country: CN (occurrence: CN)
  Receive Date: 20211004
  Receipt Date: 20211004
  Transmission Date: 20220303
  Serious: Yes (Hospitalization, Other)
  Sender: FDA-Public Use
  Company Number: CN-SA-2021SA319764

PATIENT
  Age: 39 Year
  Sex: Female

DRUGS (4)
  1. RIFAMPIN [Suspect]
     Active Substance: RIFAMPIN
     Indication: Tuberculous pleurisy
     Dosage: 0.45 G, QD
     Dates: start: 201812, end: 201901
  2. ISONIAZID [Suspect]
     Active Substance: ISONIAZID
     Indication: Tuberculous pleurisy
     Dosage: 0.3 G, QD
     Dates: start: 201812, end: 201901
  3. PYRAZINAMIDE [Suspect]
     Active Substance: PYRAZINAMIDE
     Indication: Tuberculous pleurisy
     Dosage: 1.5 G, QD
     Dates: start: 201812, end: 201901
  4. ETHAMBUTOL [Suspect]
     Active Substance: ETHAMBUTOL HYDROCHLORIDE
     Indication: Tuberculous pleurisy
     Dosage: 0.75 G, QD
     Dates: start: 201812, end: 201901

REACTIONS (11)
  - Drug-induced liver injury [Recovered/Resolved]
  - Fatigue [Recovered/Resolved]
  - Ocular icterus [Recovered/Resolved]
  - Yellow skin [Recovered/Resolved]
  - Nausea [Recovered/Resolved]
  - Decreased appetite [Recovered/Resolved]
  - Myopathy [Recovered/Resolved]
  - Peripheral swelling [Recovered/Resolved]
  - Muscular weakness [Recovered/Resolved]
  - Ascites [Recovered/Resolved]
  - Hepatic steatosis [Recovered/Resolved]

NARRATIVE: CASE EVENT DATE: 20190101
